FAERS Safety Report 6918146-2 (Version None)
Quarter: 2010Q3

REPORT INFORMATION
  Report Type: 
  Country: None (occurrence: None)
  Receive Date: 20100810
  Receipt Date: 20100802
  Transmission Date: 20110219
  Serious: Yes (Other)
  Sender: FDA-Public Use
  Company Number: US-AMGEN-QUU428618

PATIENT
  Sex: Male

DRUGS (2)
  1. NPLATE [Suspect]
     Indication: IDIOPATHIC THROMBOCYTOPENIC PURPURA
     Dates: start: 20100706
  2. IMMU-G [Concomitant]
     Route: 042
     Dates: start: 20100630

REACTIONS (1)
  - CARDIAC DISORDER [None]
